FAERS Safety Report 8872365 (Version 1)
Quarter: 2012Q4

REPORT INFORMATION
  Report Type: 
  Country: CH (occurrence: CH)
  Receive Date: 20121030
  Receipt Date: 20121030
  Transmission Date: 20130627
  Serious: Yes (Other)
  Sender: FDA-Public Use
  Company Number: CH-ELI_LILLY_AND_COMPANY-CH201210006418

PATIENT
  Age: 0 Year

DRUGS (6)
  1. FLUCTINE [Suspect]
     Dosage: UNK
     Route: 064
     Dates: end: 200903
  2. FLUCTINE [Suspect]
     Dosage: UNK
     Route: 064
     Dates: end: 200903
  3. TOPAMAX [Concomitant]
     Dosage: 1 DF, qd
     Route: 064
     Dates: end: 200903
  4. TOPAMAX [Concomitant]
     Dosage: 1 DF, qd
     Route: 064
     Dates: end: 200903
  5. ZOLPIDEM [Concomitant]
     Dosage: UNK
     Route: 064
  6. ZOLPIDEM [Concomitant]
     Dosage: UNK
     Route: 064

REACTIONS (3)
  - Deafness bilateral [Not Recovered/Not Resolved]
  - Hypotonia neonatal [Recovered/Resolved]
  - Exposure during pregnancy [Recovered/Resolved]
